FAERS Safety Report 4993765-1 (Version None)
Quarter: 2006Q2

REPORT INFORMATION
  Report Type: 
  Country: None (occurrence: None)
  Receive Date: 20060503
  Receipt Date: 20060503
  Transmission Date: 20061013
  Serious: No
  Sender: FDA-Public Use
  Company Number: None

PATIENT
  Age: 32 Year
  Weight: 71.6683 kg

DRUGS (1)
  1. GENTAMICIN [Suspect]
     Indication: INFECTION
     Dosage: 350 MG DAILY IV DRIP
     Route: 041
     Dates: start: 20050831, end: 20051021

REACTIONS (11)
  - AMNESIA [None]
  - ANXIETY [None]
  - DIFFICULTY IN WALKING [None]
  - DIZZINESS [None]
  - EAR PAIN [None]
  - FATIGUE [None]
  - HEADACHE [None]
  - NIGHT BLINDNESS [None]
  - PHOTOPHOBIA [None]
  - VERTIGO [None]
  - VISION BLURRED [None]
